FAERS Safety Report 5055816-8 (Version None)
Quarter: 2006Q3

REPORT INFORMATION
  Report Type: 
  Country: None (occurrence: None)
  Receive Date: 20060720
  Receipt Date: 20060503
  Transmission Date: 20061208
  Serious: No
  Sender: FDA-Public Use
  Company Number: US-BRISTOL-MYERS SQUIBB COMPANY-13365465

PATIENT
  Sex: Female

DRUGS (1)
  1. EURAX CREAM [Suspect]
     Route: 061
     Dates: start: 20060502, end: 20060502

REACTIONS (2)
  - PALPITATIONS [None]
  - SKIN BURNING SENSATION [None]
